FAERS Safety Report 22098609 (Version 1)
Quarter: 2023Q1

REPORT INFORMATION
  Report Type: Spontaneous
  Country: US (occurrence: None)
  Receive Date: 20230314
  Receipt Date: 20230314
  Transmission Date: 20230417
  Serious: Yes (Disabling)
  Sender: FDA-Public Use
  Company Number: None

PATIENT
  Sex: Female
  Weight: 81 kg

DRUGS (5)
  1. VARENICLINE [Suspect]
     Active Substance: VARENICLINE
     Indication: Ex-tobacco user
     Dosage: OTHER QUANTITY : 1 TABLET(S);?FREQUENCY : TWICE A DAY;?
     Route: 048
     Dates: start: 20220602, end: 20221225
  2. LISINOPRIL [Concomitant]
     Active Substance: LISINOPRIL
  3. ATORVASTATIN [Concomitant]
     Active Substance: ATORVASTATIN
  4. VITAMIN D3 [Concomitant]
     Active Substance: CHOLECALCIFEROL
  5. MOTRIN [Concomitant]
     Active Substance: IBUPROFEN

REACTIONS (13)
  - Nausea [None]
  - Decreased appetite [None]
  - Obsessive thoughts [None]
  - Blood glucose decreased [None]
  - Asthenia [None]
  - Lethargy [None]
  - Asthenia [None]
  - Suicidal ideation [None]
  - Palpitations [None]
  - Withdrawal syndrome [None]
  - Stress [None]
  - Depression [None]
  - Cardiac disorder [None]
